FAERS Safety Report 5837289-8 (Version None)
Quarter: 2008Q3

REPORT INFORMATION
  Report Type: 
  Country: None (occurrence: None)
  Receive Date: 20080807
  Receipt Date: 20080729
  Transmission Date: 20090109
  Serious: Yes (Other)
  Sender: FDA-Public Use
  Company Number: US-ELI_LILLY_AND_COMPANY-US200805000638

PATIENT
  Sex: Female

DRUGS (9)
  1. BYETTA [Suspect]
     Indication: TYPE 2 DIABETES MELLITUS
     Dosage: 5 UG, 2/D
     Route: 058
     Dates: start: 20070901, end: 20080701
  2. GLUCOPHAGE [Concomitant]
     Indication: TYPE 2 DIABETES MELLITUS
     Dosage: 500 MG, 2/D
  3. GLIPIZIDE [Concomitant]
     Dosage: UNK, UNK
     Route: 048
     Dates: end: 20080401
  4. MEDOCOR [Concomitant]
     Dosage: 40 MG, DAILY (1/D)
  5. ZESTRIL [Concomitant]
     Indication: PROPHYLAXIS
     Dosage: 5 MG, DAILY (1/D)
  6. FLUORESCEIN [Concomitant]
     Indication: EYE DISORDER
     Route: 042
     Dates: start: 20080101, end: 20080101
  7. AVASTIN [Concomitant]
     Indication: EYE DISORDER
     Dosage: UNK, UNKNOWN
     Dates: start: 20050101
  8. ASPIRIN [Concomitant]
     Dosage: UNK, UNKNOWN
  9. SIMVASTATIN [Concomitant]
     Dosage: UNK, UNKNOWN

REACTIONS (7)
  - CATARACT [None]
  - CHROMATURIA [None]
  - DECREASED APPETITE [None]
  - EYE HAEMORRHAGE [None]
  - NAUSEA [None]
  - VISUAL ACUITY REDUCED [None]
  - VOMITING [None]
